FAERS Safety Report 11870053 (Version 1)
Quarter: 2015Q4

REPORT INFORMATION
  Report Type: Spontaneous
  Country: US (occurrence: None)
  Receive Date: 20151224
  Receipt Date: 20151224
  Transmission Date: 20160305
  Serious: Yes (Hospitalization)
  Sender: FDA-Public Use
  Company Number: None

PATIENT
  Age: 43 Year
  Sex: Female

DRUGS (9)
  1. MONTELUKAST [Concomitant]
     Active Substance: MONTELUKAST SODIUM
  2. AFINITOR [Concomitant]
     Active Substance: EVEROLIMUS
  3. CEFUROXIME. [Concomitant]
     Active Substance: CEFUROXIME
  4. BENZONATATE. [Concomitant]
     Active Substance: BENZONATATE
  5. CHLORTHALID [Concomitant]
  6. AZELASTINE [Concomitant]
     Active Substance: AZELASTINE
  7. FERROUS SULF [Concomitant]
  8. AFINITOR [Suspect]
     Active Substance: EVEROLIMUS
     Indication: HEPATIC CANCER
     Route: 048
     Dates: start: 201307
  9. SODIUM BICAR [Concomitant]

REACTIONS (2)
  - Haemoglobin decreased [None]
  - Menorrhagia [None]

NARRATIVE: CASE EVENT DATE: 20151001
